FAERS Safety Report 6290806-9 (Version None)
Quarter: 2009Q3

REPORT INFORMATION
  Report Type: 
  Country: None (occurrence: None)
  Receive Date: 20090730
  Receipt Date: 20090720
  Transmission Date: 20100115
  Serious: Yes (Hospitalization)
  Sender: FDA-Public Use
  Company Number: RS-NOVOPROD-289010

PATIENT
  Sex: Male
  Weight: 24.5 kg

DRUGS (4)
  1. NORDITROPIN [Suspect]
     Indication: GROWTH HORMONE DEFICIENCY
     Dosage: .8 MG, QD
     Route: 058
     Dates: start: 20080304, end: 20090331
  2. NORDITROPIN [Suspect]
     Dosage: .875 MG, QD
     Route: 058
     Dates: start: 20090401, end: 20090624
  3. NORDITROPIN [Suspect]
     Dosage: .875 MG, QD
     Route: 058
     Dates: start: 20090630
  4. THYROXIN-NATRIUM [Concomitant]
     Indication: HYPOTHYROIDISM
     Dosage: 75 UG, QD
     Route: 048
     Dates: start: 19990720

REACTIONS (1)
  - CONVULSION [None]
